FAERS Safety Report 9919270 (Version 3)
Quarter: 2014Q1

REPORT INFORMATION
  Report Type: Spontaneous
  Country: US (occurrence: US)
  Receive Date: 20140224
  Receipt Date: 20140313
  Transmission Date: 20141002
  Serious: Yes (Other)
  Sender: FDA-Public Use
  Company Number: US-BEH-2013038089

PATIENT
  Sex: Male
  Weight: 67 kg

DRUGS (19)
  1. PRIVIGEN [Suspect]
     Dosage: IV GRAVITY OVER 3-4 HOURS
     Route: 042
  2. PRIVIGEN [Suspect]
     Dosage: IV GRAVITY OVER 3-4 HOURS
     Route: 042
  3. PRIVIGEN [Suspect]
     Indication: IMMUNE SYSTEM DISORDER
     Dosage: 5 GM VIAL
     Route: 042
  4. PRIVIGEN [Suspect]
     Dosage: 10 GM VIAL
     Route: 042
  5. DIPHENHYDRAMINE [Concomitant]
  6. SODIUM CHLORIDE [Concomitant]
  7. EPI-PEN [Concomitant]
  8. FLUCONAZOLE [Concomitant]
  9. ADVAIR [Concomitant]
  10. MUCINEX [Concomitant]
  11. XOPENEX [Concomitant]
  12. OMEPRAZOLE [Concomitant]
  13. METHYLPREDNISOLONE [Concomitant]
  14. LMX [Concomitant]
  15. HIZENTRA [Concomitant]
  16. LORATADINE [Concomitant]
  17. MEDROL [Concomitant]
  18. CIPRO [Concomitant]
  19. TOBRAMYCIN [Concomitant]

REACTIONS (2)
  - Hypoglycaemia [Unknown]
  - Pleurisy [Unknown]
